FAERS Safety Report 11775455 (Version 3)
Quarter: 2016Q3

REPORT INFORMATION
  Report Type: Spontaneous
  Country: US (occurrence: US)
  Receive Date: 20151125
  Receipt Date: 20160829
  Transmission Date: 20161109
  Serious: No
  Sender: FDA-Public Use
  Company Number: US-JNJFOC-20151104713

PATIENT
  Age: 13 Year
  Sex: Male

DRUGS (7)
  1. METHYLPHENIDATE. [Suspect]
     Active Substance: METHYLPHENIDATE
     Indication: PRODUCT USED FOR UNKNOWN INDICATION
     Route: 048
  2. ADDERALL [Suspect]
     Active Substance: AMPHETAMINE ASPARTATE\AMPHETAMINE SULFATE\DEXTROAMPHETAMINE SACCHARATE\DEXTROAMPHETAMINE SULFATE
     Indication: PRODUCT USED FOR UNKNOWN INDICATION
     Route: 065
  3. RISPERDAL [Suspect]
     Active Substance: RISPERIDONE
     Indication: IRRITABILITY
     Route: 048
     Dates: start: 1997, end: 2005
  4. RISPERDAL [Suspect]
     Active Substance: RISPERIDONE
     Indication: ATTENTION DEFICIT/HYPERACTIVITY DISORDER
     Route: 048
     Dates: start: 1997, end: 2005
  5. RISPERDAL [Suspect]
     Active Substance: RISPERIDONE
     Indication: EMOTIONAL DISORDER
     Route: 048
     Dates: start: 1997, end: 2005
  6. ZYPREXA [Suspect]
     Active Substance: OLANZAPINE
     Indication: ANGER
     Route: 065
  7. ZYPREXA [Suspect]
     Active Substance: OLANZAPINE
     Indication: AFFECTIVE DISORDER
     Route: 065

REACTIONS (8)
  - Gynaecomastia [Unknown]
  - Headache [Unknown]
  - Drug ineffective [Unknown]
  - Product use issue [Unknown]
  - Decreased appetite [Unknown]
  - Abnormal weight gain [Unknown]
  - Blood prolactin increased [Unknown]
  - Off label use [Unknown]

NARRATIVE: CASE EVENT DATE: 1997
